FAERS Safety Report 5146324-4 (Version None)
Quarter: 2006Q4

REPORT INFORMATION
  Report Type: 
  Country: None (occurrence: None)
  Receive Date: 20061102
  Receipt Date: 20061021
  Transmission Date: 20070319
  Serious: Yes (Other)
  Sender: FDA-Public Use
  Company Number: 2006129559

PATIENT
  Age: 67 Year
  Sex: Female
  Weight: 90.7194 kg

DRUGS (13)
  1. DETROL LA [Suspect]
     Indication: POLLAKIURIA
     Dosage: 4 MG
     Dates: start: 20061001
  2. ACETYLSALICYLIC ACID SRT [Concomitant]
  3. AVANDIA [Concomitant]
  4. DILTIAZEM HCL [Concomitant]
  5. CILOSTAZOL [Concomitant]
  6. CLONIDINE [Concomitant]
  7. PROPRANOLOL [Concomitant]
  8. FUROSEMIDE [Concomitant]
  9. HYDROCHLOROTHIAZIDE [Concomitant]
  10. POTASSIUM CHLORIDE [Concomitant]
  11. FOLTX (CYANOCOBALAMIN, FOLIC ACID, PYRIDOXINE) [Concomitant]
  12. BYTORIN (EZETIMIBE, SIMVASTATIN) [Concomitant]
  13. MAGNESIUM OXIDE [Concomitant]

REACTIONS (1)
  - BLOOD PRESSURE INCREASED [None]
